FAERS Safety Report 20086966 (Version 1)
Quarter: 2021Q4

REPORT INFORMATION
  Report Type: Report from Study
  Country: IT (occurrence: IT)
  Receive Date: 20211118
  Receipt Date: 20211118
  Transmission Date: 20220303
  Serious: Yes (Other)
  Sender: FDA-Public Use
  Company Number: None

PATIENT
  Age: 51 Year
  Sex: Female
  Weight: 61 kg

DRUGS (2)
  1. PACLITAXEL [Suspect]
     Active Substance: PACLITAXEL
     Indication: Breast cancer
     Dosage: 135 MG
     Dates: start: 20211008, end: 20211015
  2. HERZUMA [Concomitant]
     Active Substance: TRASTUZUMAB-PKRB
     Indication: Breast cancer
     Dosage: 122 MG
     Dates: start: 20211008

REACTIONS (3)
  - Erythema [Recovered/Resolved with Sequelae]
  - Pruritus [Recovered/Resolved with Sequelae]
  - Skin reaction [Recovered/Resolved with Sequelae]

NARRATIVE: CASE EVENT DATE: 20211017
